FAERS Safety Report 5038052-0 (Version None)
Quarter: 2006Q2

REPORT INFORMATION
  Report Type: 
  Country: None (occurrence: None)
  Receive Date: 20060531
  Receipt Date: 20020730
  Transmission Date: 20061013
  Serious: Yes (Other)
  Sender: FDA-Public Use
  Company Number: CVAT2002US00669

PATIENT
  Age: 74 Year
  Sex: 0

DRUGS (3)
  1. VOLTAREN [Suspect]
     Indication: CATARACT
     Dosage: 1 GTT, QID, TOPICAL OPHTH.
     Route: 047
     Dates: start: 20020708, end: 20020718
  2. ECONOPRED (PREDNISOLONE ACETATE) [Concomitant]
  3. MAXITROL (DEXAMETHASONE, NEOMYCIN SULFATE, POLYMYXIN B SULFATE) [Concomitant]

REACTIONS (3)
  - CORNEAL THINNING [None]
  - ULCERATIVE KERATITIS [None]
  - VISUAL ACUITY REDUCED [None]
